FAERS Safety Report 18869916 (Version 2)
Quarter: 2021Q1

REPORT INFORMATION
  Report Type: Report from Study
  Country: AU (occurrence: AU)
  Receive Date: 20210209
  Receipt Date: 20210301
  Transmission Date: 20210420
  Serious: Yes (Hospitalization)
  Sender: FDA-Public Use
  Company Number: AU-PFIZER INC-2021117156

PATIENT
  Age: 38 Year
  Sex: Female
  Weight: 70.07 kg

DRUGS (14)
  1. FLUOROURACIL. [Suspect]
     Active Substance: FLUOROURACIL
     Dosage: 4416 MG, EVERY 2 WEEKS
     Route: 042
     Dates: start: 20210127, end: 20210127
  2. OXYCONTIN [Concomitant]
     Active Substance: OXYCODONE HYDROCHLORIDE
     Indication: ABDOMINAL PAIN
     Dosage: 50 MG, 2X/DAY
     Route: 048
     Dates: start: 20190124
  3. CALCIUM FOLINATE [Suspect]
     Active Substance: LEUCOVORIN CALCIUM
     Indication: COLORECTAL CANCER METASTATIC
     Dosage: 736 MG, EVERY 2 WEEKS
     Route: 042
     Dates: start: 20210127, end: 20210129
  4. ENDONE [Concomitant]
     Active Substance: OXYCODONE HYDROCHLORIDE
     Indication: ABDOMINAL PAIN
     Dosage: 5 MG, EVERY 2 HOURS
     Route: 048
     Dates: start: 20210118
  5. COLOXYL WITH SENNA [Concomitant]
     Active Substance: DOCUSATE SODIUM\SENNOSIDES A AND B
     Indication: CONSTIPATION
     Dosage: 2 TABLETS, 2X/DAY
     Route: 048
     Dates: start: 20210112
  6. MOVICOL [Concomitant]
     Active Substance: POLYETHYLENE GLYCOL 3350\POTASSIUM CHLORIDE\SODIUM BICARBONATE\SODIUM CHLORIDE
     Indication: CONSTIPATION
     Dosage: 2 SACH, 2X/DAY
     Route: 048
     Dates: start: 20210112
  7. SERTRALINE [Concomitant]
     Active Substance: SERTRALINE HYDROCHLORIDE
     Indication: DEPRESSION
     Dosage: 50 MG, 1X/DAY
     Route: 048
     Dates: start: 20190107
  8. PANADEINE FORTE [Concomitant]
     Active Substance: ACETAMINOPHEN\CODEINE PHOSPHATE
     Indication: ABDOMINAL PAIN
     Dosage: [CODEINE PHOSPHATE 30 MG]/[PARACETAMOL 500 MG], 2 TABLETS, 3X/DAY
     Dates: start: 20201229
  9. FLUOROURACIL. [Suspect]
     Active Substance: FLUOROURACIL
     Indication: COLORECTAL CANCER METASTATIC
     Dosage: 76.3 MG, EVERY 2 WEEKS
     Route: 040
     Dates: start: 20210127, end: 20210127
  10. PANTOPRAZOLE [Concomitant]
     Active Substance: PANTOPRAZOLE
     Indication: REFLUX GASTRITIS
     Dosage: 40 MG, 1X/DAY
     Route: 048
     Dates: start: 20201116
  11. ONDANSETRON [Concomitant]
     Active Substance: ONDANSETRON
     Indication: NAUSEA
     Dosage: 4 MG, 3X/DAY
     Route: 048
     Dates: start: 20201229, end: 20210126
  12. ENCORAFENIB [Suspect]
     Active Substance: ENCORAFENIB
     Indication: COLORECTAL CANCER METASTATIC
     Dosage: 300 MG, ONCE DAILY
     Route: 048
     Dates: start: 20210127
  13. OXALIPLATIN. [Suspect]
     Active Substance: OXALIPLATIN
     Indication: COLORECTAL CANCER METASTATIC
     Dosage: 156 MG, EVERY 2 WEEKS
     Route: 042
     Dates: start: 20210127, end: 20210127
  14. CETUXIMAB. [Suspect]
     Active Substance: CETUXIMAB
     Indication: COLORECTAL CANCER METASTATIC
     Dosage: 920 MG, EVERY 2 WEEKS
     Route: 042
     Dates: start: 20210127, end: 20210127

REACTIONS (1)
  - Rhinovirus infection [Recovered/Resolved]

NARRATIVE: CASE EVENT DATE: 20210130
